FAERS Safety Report 18342592 (Version 1)
Quarter: 2020Q4

REPORT INFORMATION
  Report Type: Report from Study
  Country: CA (occurrence: CA)
  Receive Date: 20201005
  Receipt Date: 20201005
  Transmission Date: 20210113
  Serious: Yes (Other)
  Sender: FDA-Public Use
  Company Number: CA-ACCORD-203230

PATIENT
  Age: 59 Year
  Sex: Female

DRUGS (37)
  1. MORPHINE [Suspect]
     Active Substance: MORPHINE
     Indication: PRODUCT USED FOR UNKNOWN INDICATION
     Dosage: NOT SPECIFIED
     Route: 065
  2. ABILIFY [Concomitant]
     Active Substance: ARIPIPRAZOLE
  3. LYRICA [Concomitant]
     Active Substance: PREGABALIN
  4. NAPROXEN. [Concomitant]
     Active Substance: NAPROXEN
     Dosage: NOT SPECIFIED
  5. VENLAFAXINE [Concomitant]
     Active Substance: VENLAFAXINE HYDROCHLORIDE
  6. DEXAMETHASONE. [Suspect]
     Active Substance: DEXAMETHASONE
     Indication: PRODUCT USED FOR UNKNOWN INDICATION
     Dosage: NOT SPECIFIED
     Route: 065
  7. BOTULINUM TOXIN TYPE A [Concomitant]
     Active Substance: BOTULINUM TOXIN TYPE A
     Dosage: NOT SPECIFIED
  8. IMOVANE [Concomitant]
     Active Substance: ZOPICLONE
  9. LAMOTRIGINE. [Concomitant]
     Active Substance: LAMOTRIGINE
  10. LITHIUM. [Concomitant]
     Active Substance: LITHIUM
  11. TRAZODONE [Concomitant]
     Active Substance: TRAZODONE HYDROCHLORIDE
  12. BUPROPION/BUPROPION HYDROCHLORIDE [Suspect]
     Active Substance: BUPROPION HYDROCHLORIDE
     Indication: PRODUCT USED FOR UNKNOWN INDICATION
     Route: 065
  13. CITALOPRAM [Suspect]
     Active Substance: CITALOPRAM HYDROBROMIDE
     Indication: PRODUCT USED FOR UNKNOWN INDICATION
     Route: 065
  14. DICLOFENAC [Suspect]
     Active Substance: DICLOFENAC
     Indication: PRODUCT USED FOR UNKNOWN INDICATION
     Route: 065
  15. WELLBUTRIN [Suspect]
     Active Substance: BUPROPION HYDROCHLORIDE
     Indication: PRODUCT USED FOR UNKNOWN INDICATION
     Route: 065
  16. PARACETAMOL [Concomitant]
     Active Substance: ACETAMINOPHEN
  17. ALLOPURINOL. [Concomitant]
     Active Substance: ALLOPURINOL
  18. CLONAZEPAM. [Concomitant]
     Active Substance: CLONAZEPAM
  19. TOPAMAX [Concomitant]
     Active Substance: TOPIRAMATE
  20. CYCLOBENZAPRINE. [Concomitant]
     Active Substance: CYCLOBENZAPRINE
  21. NORFLEX [Concomitant]
     Active Substance: ORPHENADRINE CITRATE
  22. BOTULINUM TOXIN TYPE A [Concomitant]
     Active Substance: BOTULINUM TOXIN TYPE A
  23. CODEINE [Suspect]
     Active Substance: CODEINE
     Indication: PRODUCT USED FOR UNKNOWN INDICATION
     Route: 065
  24. VENLAFAXINE [Suspect]
     Active Substance: VENLAFAXINE HYDROCHLORIDE
     Indication: PRODUCT USED FOR UNKNOWN INDICATION
     Route: 065
  25. CYMBALTA [Concomitant]
     Active Substance: DULOXETINE HYDROCHLORIDE
     Dosage: NOT SPECIFIED
  26. ESCITALOPRAM [Concomitant]
     Active Substance: ESCITALOPRAM OXALATE
  27. BETAMETHASONE\SALICYLIC ACID [Concomitant]
     Active Substance: BETAMETHASONE\SALICYLIC ACID
  28. FLUOXETINE [Suspect]
     Active Substance: FLUOXETINE HYDROCHLORIDE
     Indication: PRODUCT USED FOR UNKNOWN INDICATION
     Dosage: NOT SPECIFIED
     Route: 065
  29. WELLBUTRIN [Suspect]
     Active Substance: BUPROPION HYDROCHLORIDE
     Indication: PRODUCT USED FOR UNKNOWN INDICATION
     Route: 065
  30. SUMATRIPTAN. [Suspect]
     Active Substance: SUMATRIPTAN
     Indication: PRODUCT USED FOR UNKNOWN INDICATION
     Route: 065
  31. VORTIOXETINE. [Suspect]
     Active Substance: VORTIOXETINE
     Indication: PRODUCT USED FOR UNKNOWN INDICATION
     Route: 065
  32. TEMAZEPAM. [Concomitant]
     Active Substance: TEMAZEPAM
  33. ZOPICLONE [Concomitant]
     Active Substance: ZOPICLONE
  34. BACLOFEN. [Concomitant]
     Active Substance: BACLOFEN
     Dosage: NOT SPECIFIED
  35. GABAPENTIN. [Concomitant]
     Active Substance: GABAPENTIN
     Dosage: NOT SPECIFIED
  36. PAROXETINE. [Concomitant]
     Active Substance: PAROXETINE
  37. PREDNISONE. [Concomitant]
     Active Substance: PREDNISONE
     Dosage: NOT SPECIFIED

REACTIONS (34)
  - Body temperature increased [Unknown]
  - Dyspepsia [Unknown]
  - Flushing [Unknown]
  - Headache [Unknown]
  - Muscle twitching [Unknown]
  - Somnolence [Unknown]
  - Anxiety [Unknown]
  - Feeling hot [Unknown]
  - Irritability [Unknown]
  - Poor quality sleep [Unknown]
  - Sternal fracture [Unknown]
  - Concussion [Unknown]
  - Diarrhoea [Unknown]
  - Hypoaesthesia [Unknown]
  - Memory impairment [Unknown]
  - Middle insomnia [Unknown]
  - Migraine [Unknown]
  - Dizziness [Unknown]
  - Libido increased [Unknown]
  - Hostility [Unknown]
  - Tremor [Unknown]
  - Weight increased [Unknown]
  - Nightmare [Unknown]
  - Post-traumatic neck syndrome [Unknown]
  - Sedation [Unknown]
  - Soft tissue injury [Unknown]
  - Dysgeusia [Unknown]
  - Rib fracture [Unknown]
  - Vertigo [Unknown]
  - Weight decreased [Unknown]
  - Gastrooesophageal reflux disease [Unknown]
  - Hyperhidrosis [Unknown]
  - Nausea [Unknown]
  - Personality disorder [Unknown]
